FAERS Safety Report 13172092 (Version 1)
Quarter: 2017Q1

REPORT INFORMATION
  Report Type: Spontaneous
  Country: US (occurrence: US)
  Receive Date: 20170130
  Receipt Date: 20170130
  Transmission Date: 20170428
  Serious: No
  Sender: FDA-Public Use
  Company Number: None

PATIENT
  Age: 68 Year
  Sex: Female

DRUGS (7)
  1. OTREXUP [Suspect]
     Active Substance: METHOTREXATE
     Indication: THYROID DISORDER
  2. OTREXUP [Suspect]
     Active Substance: METHOTREXATE
     Indication: ESSENTIAL HYPERTENSION
  3. OTREXUP [Suspect]
     Active Substance: METHOTREXATE
     Indication: ARTHROPATHY
  4. OTREXUP [Suspect]
     Active Substance: METHOTREXATE
     Indication: RHEUMATOID ARTHRITIS
  5. OTREXUP [Suspect]
     Active Substance: METHOTREXATE
     Indication: HYPERLIPIDAEMIA
  6. OTREXUP [Suspect]
     Active Substance: METHOTREXATE
     Indication: TYPE 2 DIABETES MELLITUS
  7. OTREXUP [Suspect]
     Active Substance: METHOTREXATE
     Indication: NERVOUS SYSTEM DISORDER

REACTIONS (4)
  - Cholelithiasis [None]
  - Diverticular perforation [None]
  - Purulence [None]
  - Unresponsive to stimuli [None]

NARRATIVE: CASE EVENT DATE: 20160701
